FAERS Safety Report 21808513 (Version 1)
Quarter: 2023Q1

REPORT INFORMATION
  Report Type: Other
  Country: ZA (occurrence: ZA)
  Receive Date: 20230103
  Receipt Date: 20230103
  Transmission Date: 20230418
  Serious: Yes (Other)
  Sender: FDA-Public Use
  Company Number: ZA-002147023-NVSC2022ZA220743

PATIENT
  Age: 52 Year
  Sex: Male

DRUGS (2)
  1. LUCENTIS [Suspect]
     Active Substance: RANIBIZUMAB
     Indication: Diabetic retinal oedema
     Dosage: 10 MG, QMO (1 MO MG IN 0.23 ML)
     Route: 050
     Dates: start: 20220330
  2. LUCENTIS [Suspect]
     Active Substance: RANIBIZUMAB
     Route: 050
     Dates: start: 20221228

REACTIONS (4)
  - Diabetes mellitus [Unknown]
  - Malaise [Unknown]
  - Skin ulcer [Unknown]
  - Product dose omission issue [Unknown]

NARRATIVE: CASE EVENT DATE: 20220926
